FAERS Safety Report 18144721 (Version 1)
Quarter: 2020Q3

REPORT INFORMATION
  Report Type: Spontaneous
  Country: US (occurrence: US)
  Receive Date: 20200813
  Receipt Date: 20200813
  Transmission Date: 20201103
  Serious: No
  Sender: FDA-Public Use
  Company Number: US-NOVEN PHARMACEUTICALS, INC.-US2019000668

PATIENT

DRUGS (6)
  1. COMBIPATCH [Suspect]
     Active Substance: ESTRADIOL\NORETHINDRONE ACETATE
     Indication: IRRITABILITY
     Dosage: 0.05/0.14 MG, UNKNOWN
     Route: 062
  2. COMBIPATCH [Suspect]
     Active Substance: ESTRADIOL\NORETHINDRONE ACETATE
     Indication: HOT FLUSH
  3. COMBIPATCH [Suspect]
     Active Substance: ESTRADIOL\NORETHINDRONE ACETATE
     Indication: OFF LABEL USE
  4. COMBIPATCH [Suspect]
     Active Substance: ESTRADIOL\NORETHINDRONE ACETATE
     Indication: PRURITUS
  5. COMBIPATCH [Suspect]
     Active Substance: ESTRADIOL\NORETHINDRONE ACETATE
     Indication: NIGHT SWEATS
  6. COMBIPATCH [Suspect]
     Active Substance: ESTRADIOL\NORETHINDRONE ACETATE
     Indication: CHILLS

REACTIONS (8)
  - Therapeutic response unexpected [Not Recovered/Not Resolved]
  - Off label use [Not Recovered/Not Resolved]
  - Product adhesion issue [Unknown]
  - Blood oestrogen decreased [Unknown]
  - Wrong technique in product usage process [Unknown]
  - Internal haemorrhage [Not Recovered/Not Resolved]
  - Discharge [Unknown]
  - Uterine pain [Unknown]

NARRATIVE: CASE EVENT DATE: 2019
